FAERS Safety Report 9134953 (Version 1)
Quarter: 2013Q1

REPORT INFORMATION
  Report Type: Spontaneous
  Country: US (occurrence: US)
  Receive Date: 20130304
  Receipt Date: 20130304
  Transmission Date: 20140127
  Serious: No
  Sender: FDA-Public Use
  Company Number: US-BAYER-2013-027170

PATIENT
  Age: 42 Year
  Sex: Male
  Weight: 82.99 kg

DRUGS (3)
  1. BETASERON [Suspect]
     Indication: RELAPSING-REMITTING MULTIPLE SCLEROSIS
     Dosage: 0.3 MG, QOD
     Route: 058
  2. PREDNISONE [Concomitant]
  3. VITAMIN C [Concomitant]

REACTIONS (5)
  - Dyspepsia [Unknown]
  - Night sweats [Unknown]
  - Nausea [Unknown]
  - Abdominal discomfort [Unknown]
  - Injection site pain [Unknown]
